FAERS Safety Report 8046832-2 (Version None)
Quarter: 2012Q1

REPORT INFORMATION
  Report Type: 
  Country: None (occurrence: None)
  Receive Date: 20120116
  Receipt Date: 20120105
  Transmission Date: 20120608
  Serious: No
  Sender: FDA-Public Use
  Company Number: US-BIOGENIDEC-2012BI000616

PATIENT
  Sex: Female

DRUGS (4)
  1. GABAPENTIN [Concomitant]
     Indication: NEURALGIA
  2. AVONEX [Suspect]
     Indication: MULTIPLE SCLEROSIS
     Route: 030
     Dates: start: 20000701, end: 20030101
  3. AVONEX [Suspect]
     Route: 030
     Dates: start: 20030101
  4. DIAZEPAM [Concomitant]
     Indication: MUSCLE SPASTICITY

REACTIONS (13)
  - LARYNGITIS [None]
  - MUSCULOSKELETAL PAIN [None]
  - ARTHRITIS [None]
  - ARTHRALGIA [None]
  - TENDON DISORDER [None]
  - LOSS OF CONTROL OF LEGS [None]
  - INTERVERTEBRAL DISC PROTRUSION [None]
  - FALL [None]
  - FACIAL BONES FRACTURE [None]
  - CARTILAGE INJURY [None]
  - DISTURBANCE IN ATTENTION [None]
  - LOWER EXTREMITY MASS [None]
  - MENISCUS LESION [None]
